FAERS Safety Report 17730634 (Version 1)
Quarter: 2020Q2

REPORT INFORMATION
  Report Type: Spontaneous
  Country: DE (occurrence: DE)
  Receive Date: 20200430
  Receipt Date: 20200430
  Transmission Date: 20200714
  Serious: Yes (Hospitalization)
  Sender: FDA-Public Use
  Company Number: DE-MYLANLABS-2020M1042422

PATIENT
  Age: 63 Year
  Sex: Male

DRUGS (8)
  1. IBUPROFEN. [Suspect]
     Active Substance: IBUPROFEN
     Indication: PRODUCT USED FOR UNKNOWN INDICATION
     Dosage: NK MG, 4X
     Route: 048
  2. SALOFALK                           /00747601/ [Concomitant]
     Active Substance: MESALAMINE
     Dosage: 1000 MILLIGRAM, QD, 0-1-0-0
  3. PANTOPRAZOL                        /01263201/ [Concomitant]
     Active Substance: PANTOPRAZOLE
     Dosage: 40 MILLIGRAM, QD
     Route: 048
  4. NALOXONE W/OXYCODONE [Concomitant]
     Active Substance: NALOXONE HYDROCHLORIDE\OXYCODONE HYDROCHLORIDE
     Dosage: 10|20 MG, 2-1-2-0
     Route: 048
  5. CANDESARTAN. [Concomitant]
     Active Substance: CANDESARTAN
     Dosage: 8 MILLIGRAM, QD, 0-0-1-0
     Route: 048
  6. CLONIDIN-RATIOPHARM [Concomitant]
     Dosage: 150 MICROGRAM
     Route: 048
  7. PREDNISOLONE. [Suspect]
     Active Substance: PREDNISOLONE
     Indication: PRODUCT USED FOR UNKNOWN INDICATION
     Dosage: 7.5 MG, 1-0-0-0
     Route: 048
  8. PREGABALIN. [Concomitant]
     Active Substance: PREGABALIN
     Dosage: 200 MILLIGRAM, QD
     Route: 048

REACTIONS (7)
  - Haematemesis [Unknown]
  - Vomiting [Unknown]
  - Nausea [Unknown]
  - General physical health deterioration [Unknown]
  - Fatigue [Unknown]
  - Tachycardia [Unknown]
  - Decreased appetite [Unknown]
